FAERS Safety Report 5260520-7 (Version None)
Quarter: 2007Q1

REPORT INFORMATION
  Report Type: 
  Country: None (occurrence: None)
  Receive Date: 20070309
  Receipt Date: 20061013
  Transmission Date: 20070707
  Serious: No
  Sender: FDA-Public Use
  Company Number: US-GLAXOSMITHKLINE-A0623366A

PATIENT
  Age: 26 Year

DRUGS (3)
  1. NICORETTE [Suspect]
     Dates: start: 20061009
  2. AMOXICILLIN [Concomitant]
  3. METRONIDAZOLE [Concomitant]

REACTIONS (2)
  - DIZZINESS [None]
  - INTENTIONAL DRUG MISUSE [None]
